FAERS Safety Report 20439041 (Version 1)
Quarter: 2022Q1

REPORT INFORMATION
  Report Type: Spontaneous
  Country: US (occurrence: US)
  Receive Date: 20220207
  Receipt Date: 20220207
  Transmission Date: 20220423
  Serious: No
  Sender: FDA-Public Use
  Company Number: US-ELI_LILLY_AND_COMPANY-US202202002063

PATIENT
  Age: 57 Year
  Sex: Female

DRUGS (1)
  1. TALTZ [Suspect]
     Active Substance: IXEKIZUMAB
     Indication: Product used for unknown indication
     Dosage: 160 MG, OTHER (LOADING DOSE)
     Route: 065
     Dates: start: 20220120

REACTIONS (8)
  - Chills [Unknown]
  - Pain [Unknown]
  - Headache [Unknown]
  - Pyrexia [Unknown]
  - Injection site rash [Recovering/Resolving]
  - Injection site pruritus [Recovered/Resolved]
  - Injection site erythema [Unknown]
  - Injection site bruising [Unknown]

NARRATIVE: CASE EVENT DATE: 20220130
